FAERS Safety Report 8783432 (Version 1)
Quarter: 2012Q4

REPORT INFORMATION
  Report Type: 
  Country: US (occurrence: US)
  Receive Date: 20120913
  Receipt Date: 20120913
  Transmission Date: 20130627
  Serious: Yes (Other)
  Sender: FDA-Public Use
  Company Number: US-VERTEX PHARMACEUTICAL INC.-AE-2012-008253

PATIENT
  Age: 59 None
  Sex: Female

DRUGS (10)
  1. INCIVEK [Suspect]
     Indication: HEPATITIS C
     Route: 048
     Dates: start: 20120409
  2. PEGASYS [Concomitant]
     Indication: HEPATITIS C
     Route: 058
     Dates: start: 20120409
  3. RIBASPHERE [Concomitant]
     Indication: HEPATITIS C
     Route: 048
     Dates: start: 20120409
  4. RIBASPHERE [Concomitant]
     Route: 048
     Dates: start: 20120525
  5. RIBASPHERE [Concomitant]
     Route: 048
  6. LISINOPRIL [Concomitant]
     Route: 048
  7. LEVEMIR INSULIN [Concomitant]
     Indication: DIABETES MELLITUS
  8. NOVOLOG INSULIN [Concomitant]
     Indication: DIABETES MELLITUS
  9. ALPRAZOLAM [Concomitant]
  10. LEVOTHYROXINE [Concomitant]
     Indication: HYPOTHYROIDISM
     Route: 048

REACTIONS (3)
  - Anaemia [Unknown]
  - Red blood cell count decreased [Recovered/Resolved]
  - White blood cell count decreased [Unknown]
